FAERS Safety Report 13142009 (Version 1)
Quarter: 2017Q1

REPORT INFORMATION
  Report Type: Spontaneous
  Country: US (occurrence: US)
  Receive Date: 20170123
  Receipt Date: 20170123
  Transmission Date: 20170428
  Serious: Yes (Other)
  Sender: FDA-Public Use
  Company Number: US-PFIZER INC-2017022039

PATIENT
  Age: 85 Year
  Sex: Female

DRUGS (14)
  1. LETROZOLE. [Suspect]
     Active Substance: LETROZOLE
     Indication: OESTROGEN RECEPTOR POSITIVE BREAST CANCER
     Dosage: UNK UNK, CYCLIC (3 WEEKS ON, 1 WEEK OFF)
     Dates: start: 20161205
  2. PRILOSEC [Concomitant]
     Active Substance: OMEPRAZOLE MAGNESIUM
     Dosage: 10 MG, DAILY
     Route: 048
     Dates: start: 20161201
  3. XGEVA [Concomitant]
     Active Substance: DENOSUMAB
     Indication: BREAST CANCER FEMALE
  4. IBRANCE [Suspect]
     Active Substance: PALBOCICLIB
     Indication: OESTROGEN RECEPTOR POSITIVE BREAST CANCER
     Dosage: UNK UNK, CYCLIC (3 WEEKS ON, 1 WEEK OFF )
     Dates: start: 20161205
  5. METOPROLOL SUCCINATE. [Concomitant]
     Active Substance: METOPROLOL SUCCINATE
     Dosage: 12.5 MG, 2X/DAY (1/2 TABLET IN THE MORNING; 1/2 TABLET IN THE EVENING)
     Dates: start: 20160624
  6. XGEVA [Concomitant]
     Active Substance: DENOSUMAB
     Indication: BONE CANCER
     Dosage: 120 MG, CYCLIC (Q28D X12 MONTHS)
     Dates: start: 20160810
  7. OCUVITE [Concomitant]
     Active Substance: VITAMINS
     Dosage: UNK (150 MG-30 UNIT-5 MG-150 MG CAPSULE)
     Dates: start: 20160624
  8. SYNTHROID [Concomitant]
     Active Substance: LEVOTHYROXINE SODIUM
     Dosage: 75 UG, UNK
     Dates: start: 20160624
  9. WARFARIN [Concomitant]
     Active Substance: WARFARIN
     Dosage: 5 MG, UNK
     Dates: start: 20160624
  10. PANTOPRAZOLE [Concomitant]
     Active Substance: PANTOPRAZOLE SODIUM
     Dosage: UNK
     Dates: start: 20160908
  11. ZOFRAN [Concomitant]
     Active Substance: ONDANSETRON HYDROCHLORIDE
     Indication: NAUSEA
     Dosage: 4 MG, AS NEEDED (LET ONE TAB DISSOLVE UNDER THE TONGUE EVERY 8 HOURS)
     Route: 060
     Dates: start: 20161122
  12. FEMARA [Concomitant]
     Active Substance: LETROZOLE
     Dosage: 2.5 MG, DAILY
     Route: 048
     Dates: start: 20160810
  13. PRILOSEC [Concomitant]
     Active Substance: OMEPRAZOLE MAGNESIUM
     Dosage: UNK
     Dates: start: 20160624
  14. CALCIUM 500+D [Concomitant]
     Active Substance: CALCIUM\VITAMIN D
     Dosage: UNK [CALCIUM-500/COLECALCIFEROL-200 UNITS]
     Dates: start: 20160624

REACTIONS (3)
  - Product use issue [Unknown]
  - Atrial fibrillation [Unknown]
  - Hypothyroidism [Unknown]

NARRATIVE: CASE EVENT DATE: 20161205
